FAERS Safety Report 20032782 (Version 3)
Quarter: 2021Q4

REPORT INFORMATION
  Report Type: Spontaneous
  Country: CH (occurrence: CH)
  Receive Date: 20211104
  Receipt Date: 20211220
  Transmission Date: 20220303
  Serious: Yes (Hospitalization, Other)
  Sender: FDA-Public Use
  Company Number: CH-ABBVIE-21K-151-4145630-00

PATIENT
  Age: 26 Year
  Sex: Female

DRUGS (5)
  1. HUMIRA [Suspect]
     Active Substance: ADALIMUMAB
     Indication: Crohn^s disease
     Route: 058
     Dates: start: 202103, end: 20210729
  2. MODERNA COVID-19 VACCINE [Suspect]
     Active Substance: ELASOMERAN
     Indication: COVID-19 immunisation
     Route: 030
     Dates: start: 20210414, end: 20210414
  3. MODERNA COVID-19 VACCINE [Suspect]
     Active Substance: ELASOMERAN
     Route: 030
     Dates: start: 20210515, end: 20210515
  4. OZURDEX [Suspect]
     Active Substance: DEXAMETHASONE
     Indication: Macular oedema
     Route: 065
     Dates: start: 20211020
  5. REMICADE [Suspect]
     Active Substance: INFLIXIMAB
     Indication: Crohn^s disease
     Route: 065
     Dates: start: 20210804

REACTIONS (14)
  - Retinal occlusive vasculitis [Not Recovered/Not Resolved]
  - Uveitis [Not Recovered/Not Resolved]
  - Scleral discolouration [Not Recovered/Not Resolved]
  - Condition aggravated [Not Recovered/Not Resolved]
  - Drug ineffective [Unknown]
  - Cystoid macular oedema [Not Recovered/Not Resolved]
  - Retinal vasculitis [Recovering/Resolving]
  - Visual acuity reduced [Recovering/Resolving]
  - Paradoxical drug reaction [Unknown]
  - Vasculitis [Not Recovered/Not Resolved]
  - Macular oedema [Unknown]
  - Retinal vasculitis [Unknown]
  - Behcet^s syndrome [Unknown]
  - Autoimmune disorder [Not Recovered/Not Resolved]

NARRATIVE: CASE EVENT DATE: 20210701
